FAERS Safety Report 8012103-3 (Version None)
Quarter: 2011Q4

REPORT INFORMATION
  Report Type: 
  Country: None (occurrence: None)
  Receive Date: 20111228
  Receipt Date: 20111227
  Transmission Date: 20120403
  Serious: No
  Sender: FDA-Public Use
  Company Number: US-B.I. PHARMACEUTICALS,INC./RIDGEFIELD-2011-BP-28878BP

PATIENT
  Sex: Male

DRUGS (16)
  1. LASIX [Concomitant]
     Dosage: 40 MG
     Route: 048
  2. PREDNISONE TAB [Concomitant]
     Dosage: 9 MG
     Route: 048
  3. DILTIAZEM HCL [Concomitant]
     Dosage: 120 MG
     Route: 048
  4. TAMSULOSIN HCL [Concomitant]
     Dosage: 0.4 MG
     Route: 048
  5. ZEMPLAR [Concomitant]
     Dosage: 1 MCG
     Route: 048
  6. GEMFIBROZIL [Concomitant]
     Dosage: 500 MG
     Route: 048
  7. ALLOPURINOL [Concomitant]
     Dosage: 300 MG
     Route: 048
  8. VICTOZA [Concomitant]
     Dosage: 1.8 MG
  9. TRADJENTA [Suspect]
     Indication: TYPE 2 DIABETES MELLITUS
     Dosage: 5 MG
     Route: 048
     Dates: start: 20111216
  10. WARFARIN SODIUM [Concomitant]
     Dosage: 2 MG
     Route: 048
  11. ANDROGEL [Concomitant]
     Route: 061
  12. FINASTERIDE [Concomitant]
     Dosage: 5 MG
     Route: 048
  13. BYSTOLIC [Concomitant]
     Dosage: 10 MG
     Route: 048
  14. OMEPRAZOLE [Concomitant]
     Dosage: 40 MG
     Route: 048
  15. DIGOXIN [Concomitant]
     Dosage: 0.125 MG
     Route: 048
  16. GABAPENTIN [Concomitant]
     Dosage: 1200 MG
     Route: 048

REACTIONS (1)
  - DIARRHOEA [None]
